APPROVED DRUG PRODUCT: AMOXICILLIN AND CLAVULANATE POTASSIUM
Active Ingredient: AMOXICILLIN; CLAVULANATE POTASSIUM
Strength: 125MG/5ML;EQ 31.25MG BASE/5ML
Dosage Form/Route: FOR SUSPENSION;ORAL
Application: A209371 | Product #001 | TE Code: AB
Applicant: AUROBINDO PHARMA LTD
Approved: Apr 19, 2019 | RLD: No | RS: No | Type: RX